FAERS Safety Report 7737033-3 (Version None)
Quarter: 2011Q3

REPORT INFORMATION
  Report Type: 
  Country: None (occurrence: None)
  Receive Date: 20110908
  Receipt Date: 20110826
  Transmission Date: 20111222
  Serious: Yes (Hospitalization, Other)
  Sender: FDA-Public Use
  Company Number: US-ELI_LILLY_AND_COMPANY-US201106003093

PATIENT
  Sex: Female

DRUGS (4)
  1. FORTEO [Suspect]
     Dosage: 20 UG, QD
     Route: 065
  2. FORTEO [Suspect]
     Indication: OSTEOPOROSIS
     Dosage: 20 UG, QD
     Route: 065
  3. COUMADIN [Concomitant]
  4. ANALGESICS [Concomitant]
     Indication: PAIN

REACTIONS (6)
  - DIARRHOEA [None]
  - COMA [None]
  - ARTHRITIS [None]
  - FAECES DISCOLOURED [None]
  - FATIGUE [None]
  - MUSCLE SPASMS [None]
